FAERS Safety Report 18315088 (Version 2)
Quarter: 2020Q4

REPORT INFORMATION
  Report Type: Spontaneous
  Country: US (occurrence: US)
  Receive Date: 20200926
  Receipt Date: 20201029
  Transmission Date: 20210113
  Serious: No
  Sender: FDA-Public Use
  Company Number: US-SA-2020SA264608

PATIENT

DRUGS (2)
  1. PLAVIX [Suspect]
     Active Substance: CLOPIDOGREL BISULFATE
     Dosage: STARTED THIS MONTH
  2. ELIQUIS [Suspect]
     Active Substance: APIXABAN
     Dosage: 5 MG, BID

REACTIONS (1)
  - Pruritus [Not Recovered/Not Resolved]
